FAERS Safety Report 11515494 (Version 1)
Quarter: 2015Q3

REPORT INFORMATION
  Report Type: Spontaneous
  Country: US (occurrence: US)
  Receive Date: 20150916
  Receipt Date: 20150916
  Transmission Date: 20151125
  Serious: Yes (Other)
  Sender: FDA-Public Use
  Company Number: CHPA2015US010669

PATIENT
  Age: 76 Year
  Sex: Female

DRUGS (4)
  1. GAS-X EXTRA STRENGTH SOFTGELS [Suspect]
     Active Substance: DIMETHICONE
     Indication: ABDOMINAL DISTENSION
     Dosage: 1 DF, UNK
     Route: 048
  2. IBUPROFEN. [Concomitant]
     Active Substance: IBUPROFEN
     Indication: PAIN
     Route: 048
  3. GAS-X EXTRA STRENGTH SOFTGELS [Suspect]
     Active Substance: DIMETHICONE
     Dosage: 1 DF, UNK
     Route: 048
     Dates: start: 20150909, end: 20150909
  4. GAS-X EXTRA STRENGTH SOFTGELS [Suspect]
     Active Substance: DIMETHICONE
     Dosage: 2 DF, UNK
     Route: 048
     Dates: start: 20150910

REACTIONS (3)
  - Compression fracture [Unknown]
  - Expired product administered [Unknown]
  - Osteoporosis [Unknown]
